FAERS Safety Report 15363399 (Version 7)
Quarter: 2019Q4

REPORT INFORMATION
  Report Type: Report from Study
  Country: US (occurrence: US)
  Receive Date: 20180907
  Receipt Date: 20191206
  Transmission Date: 20200122
  Serious: Yes (Hospitalization, Disabling, Other)
  Sender: FDA-Public Use
  Company Number: US-ACTELION-A-US2018-167125

PATIENT
  Age: 4 Year
  Sex: Male
  Weight: 15.42 kg

DRUGS (22)
  1. UPTRAVI [Suspect]
     Active Substance: SELEXIPAG
     Dosage: 600 MCG, BID
     Route: 048
     Dates: start: 20180626
  2. LASIX [Concomitant]
     Active Substance: FUROSEMIDE
     Dosage: 15 MG, UNK
     Dates: start: 20161113
  3. FLONASE [Concomitant]
     Active Substance: FLUTICASONE PROPIONATE
  4. CETIRIZINE [Concomitant]
     Active Substance: CETIRIZINE HYDROCHLORIDE
  5. BUDESONIDE. [Concomitant]
     Active Substance: BUDESONIDE
     Dosage: 6 MG, BID
     Dates: start: 20170413
  6. NEOCATE [Concomitant]
     Active Substance: DIETARY SUPPLEMENT
  7. COUMADIN [Concomitant]
     Active Substance: WARFARIN SODIUM
     Dosage: 3 DF, QD
  8. OPSUMIT [Suspect]
     Active Substance: MACITENTAN
     Indication: PULMONARY HYPERTENSION
     Dosage: 10 MG, QD
     Route: 048
     Dates: start: 20170428
  9. WARFARIN [Concomitant]
     Active Substance: WARFARIN
     Dosage: 3 MG, QD
     Dates: start: 20160926
  10. ALDACTONE [Concomitant]
     Active Substance: SPIRONOLACTONE
     Dosage: 37.5 MG, BID
  11. SODIUM CHLORIDE. [Concomitant]
     Active Substance: SODIUM CHLORIDE
  12. SILDENAFIL. [Suspect]
     Active Substance: SILDENAFIL
     Dosage: 20 MG, TID
     Route: 065
  13. ALDACTONE [Concomitant]
     Active Substance: SPIRONOLACTONE
     Dosage: 37.5 MG QAM, 25 MG QPM
     Dates: start: 20161113
  14. ALVESCO [Concomitant]
     Active Substance: CICLESONIDE
  15. UPTRAVI [Suspect]
     Active Substance: SELEXIPAG
     Dosage: 200 MCG, BID
     Route: 048
  16. SILDENAFIL. [Suspect]
     Active Substance: SILDENAFIL
     Indication: PRODUCT USED FOR UNKNOWN INDICATION
     Dosage: 30 MG, TID
     Route: 065
     Dates: start: 20161011
  17. WARFARIN [Concomitant]
     Active Substance: WARFARIN
     Dosage: 1 MG, UNK
     Dates: start: 20171010
  18. BUDESONIDE. [Concomitant]
     Active Substance: BUDESONIDE
     Dosage: 3 MG, QD
  19. NYSTATIN. [Concomitant]
     Active Substance: NYSTATIN
  20. ADRENACLICK [Concomitant]
     Active Substance: EPINEPHRINE
  21. UPTRAVI [Suspect]
     Active Substance: SELEXIPAG
     Indication: PULMONARY HYPERTENSION
     Dosage: 400 MCG, BID
     Route: 048
     Dates: start: 20180123
  22. UPTRAVI [Suspect]
     Active Substance: SELEXIPAG
     Dosage: 800 MCG, BID
     Route: 048

REACTIONS (21)
  - Hypotension [Unknown]
  - Biopsy liver [Unknown]
  - Transplant evaluation [Unknown]
  - Hypersomnia [Unknown]
  - Oxygen saturation decreased [Unknown]
  - Rhinorrhoea [Unknown]
  - Pain in extremity [Unknown]
  - Nausea [Unknown]
  - Fatigue [Recovered/Resolved]
  - Cough [Unknown]
  - Somnolence [Unknown]
  - Heart rate increased [Unknown]
  - Oesophagogastroduodenoscopy [Unknown]
  - Catheterisation cardiac [Unknown]
  - Decreased appetite [Unknown]
  - Lethargy [Recovered/Resolved]
  - Vomiting [Unknown]
  - Dyspnoea [Unknown]
  - Nasopharyngitis [Unknown]
  - Cardiac procedure complication [Unknown]
  - Unevaluable event [Unknown]

NARRATIVE: CASE EVENT DATE: 20180123
